FAERS Safety Report 9157826 (Version 2)
Quarter: 2013Q3

REPORT INFORMATION
  Report Type: Spontaneous
  Country: US (occurrence: US)
  Receive Date: 20130312
  Receipt Date: 20130729
  Transmission Date: 20140515
  Serious: No
  Sender: FDA-Public Use
  Company Number: US-009507513-1303USA005197

PATIENT
  Sex: Female

DRUGS (1)
  1. PROVENTIL [Suspect]
     Dosage: 2 PUFFS 4 TIMES DAILY OR AS NEEDED
     Route: 055

REACTIONS (4)
  - Dyspnoea [Unknown]
  - Memory impairment [Unknown]
  - Drug dose omission [Unknown]
  - Product quality issue [Unknown]
